FAERS Safety Report 9313613 (Version 2)
Quarter: 2013Q2

REPORT INFORMATION
  Report Type: Spontaneous
  Country: BR (occurrence: BR)
  Receive Date: 20130528
  Receipt Date: 20130603
  Transmission Date: 20140414
  Serious: Yes (Death, Hospitalization)
  Sender: FDA-Public Use
  Company Number: BR-B.I. PHARMACEUTICALS,INC./RIDGEFIELD-2013-BR-00649BR

PATIENT
  Age: 76 Year
  Sex: Male

DRUGS (6)
  1. PRADAXA [Suspect]
     Indication: THROMBOSIS PROPHYLAXIS
     Dosage: 220 MG
     Route: 048
     Dates: start: 201302
  2. CONCOR [Concomitant]
     Dosage: 2.5 MG
  3. LASIX [Concomitant]
  4. HALOPERIDOL [Concomitant]
  5. DAFLON [Concomitant]
  6. VASOGARD [Concomitant]

REACTIONS (6)
  - Gastric haemorrhage [Fatal]
  - Shock haemorrhagic [Fatal]
  - Renal failure chronic [Fatal]
  - Blood pressure decreased [Unknown]
  - Haematochezia [Unknown]
  - Haematuria [Recovered/Resolved]
